FAERS Safety Report 6580855-5 (Version None)
Quarter: 2010Q1

REPORT INFORMATION
  Report Type: 
  Country: None (occurrence: None)
  Receive Date: 20100215
  Receipt Date: 20100201
  Transmission Date: 20100710
  Serious: Yes (Hospitalization)
  Sender: FDA-Public Use
  Company Number: DE-RANBAXY-2010RR-30922

PATIENT
  Age: 63 Year
  Sex: Female
  Weight: 86 kg

DRUGS (9)
  1. VALPROIC ACID [Suspect]
     Indication: BIPOLAR I DISORDER
     Dosage: 500 MG, QD
     Route: 048
     Dates: start: 20080820, end: 20080911
  2. PRESOMEN [Suspect]
     Indication: HORMONE REPLACEMENT THERAPY
     Dosage: 0.3 MG, QD
     Route: 048
     Dates: start: 20040101, end: 20080911
  3. HERZ ASS-RATIOPHARM [Suspect]
     Indication: CORONARY ARTERY DISEASE
     Dosage: 100 MG, QD
     Route: 048
     Dates: start: 20010101
  4. LISINOPRIL [Suspect]
     Indication: HYPERTENSION
     Dosage: 20 MG, QD
     Route: 048
     Dates: start: 20010101
  5. SIMVASTATIN [Suspect]
     Indication: HYPERLIPIDAEMIA
     Dosage: 10 MG, QD
     Route: 048
     Dates: start: 20000101
  6. BISOPROLOL [Suspect]
     Indication: HYPERTENSION
     Dosage: 2.5 MG, BID
     Route: 048
     Dates: start: 19950101
  7. AMITRIPTYLINE HCL [Suspect]
     Indication: DEPRESSION
     Dosage: 100 MG, BID
     Route: 048
     Dates: start: 20040101, end: 20080819
  8. JUNIK [Concomitant]
     Indication: ASTHMA
     Dosage: 100 UG, BID
     Route: 055
     Dates: start: 20050101
  9. INFLUSPLIT SSW [Concomitant]
     Indication: INFLUENZA IMMUNISATION
     Dosage: 0.5 ML, QD
     Route: 058
     Dates: start: 20080908, end: 20080908

REACTIONS (1)
  - LIVER INJURY [None]
